FAERS Safety Report 6702640-3 (Version None)
Quarter: 2010Q2

REPORT INFORMATION
  Report Type: 
  Country: None (occurrence: None)
  Receive Date: 20100429
  Receipt Date: 20100420
  Transmission Date: 20101027
  Serious: Yes (Other)
  Sender: FDA-Public Use
  Company Number: US-ABBOTT-10P-163-0633836-00

PATIENT
  Sex: Male
  Weight: 106.24 kg

DRUGS (3)
  1. HUMIRA [Suspect]
     Indication: PSORIATIC ARTHROPATHY
     Route: 058
     Dates: start: 20050101, end: 20100101
  2. VOLTAREN [Concomitant]
     Indication: DRUG USE FOR UNKNOWN INDICATION
     Dates: end: 20060101
  3. NORVASC [Concomitant]
     Indication: HYPERTENSION

REACTIONS (2)
  - HEPATIC FIBROSIS [None]
  - HEPATIC STEATOSIS [None]
